FAERS Safety Report 21871964 (Version 1)
Quarter: 2023Q1

REPORT INFORMATION
  Report Type: Spontaneous
  Country: DE (occurrence: DE)
  Receive Date: 20230117
  Receipt Date: 20230117
  Transmission Date: 20230417
  Serious: Yes (Other)
  Sender: FDA-Public Use
  Company Number: DE-002147023-NVSC2022DE275379

PATIENT
  Age: 84 Year
  Sex: Female

DRUGS (2)
  1. FENTANYL [Suspect]
     Active Substance: FENTANYL
     Indication: Product used for unknown indication
     Dosage: UNK
     Route: 065
  2. FENTANYL TRANSDERMAL SYSTEM [Suspect]
     Active Substance: FENTANYL
     Indication: Product used for unknown indication
     Dosage: UNK (STRENGTH: 50 ?G/H) (MATRIX PATCHES)
     Route: 065

REACTIONS (3)
  - Pelvic fracture [Unknown]
  - Spinal cord abscess [Unknown]
  - Drug ineffective [Unknown]
